FAERS Safety Report 5153797-X (Version None)
Quarter: 2006Q4

REPORT INFORMATION
  Report Type: 
  Country: None (occurrence: None)
  Receive Date: 20061120
  Receipt Date: 20060125
  Transmission Date: 20070319
  Serious: Yes (Other)
  Sender: FDA-Public Use
  Company Number: PHEH2006US01380

PATIENT
  Age: 60 Year
  Sex: Male

DRUGS (1)
  1. LAMISIL [Suspect]
     Indication: NAIL TINEA
     Dosage: 250 MG, QD
     Route: 048
     Dates: start: 20050411, end: 20050426

REACTIONS (5)
  - ANOSMIA [None]
  - GLOSSODYNIA [None]
  - HYPOGEUSIA [None]
  - PARAESTHESIA ORAL [None]
  - WEIGHT DECREASED [None]
